FAERS Safety Report 12297871 (Version 5)
Quarter: 2016Q2

REPORT INFORMATION
  Report Type: Spontaneous
  Country: BR (occurrence: BR)
  Receive Date: 20160422
  Receipt Date: 20160524
  Transmission Date: 20160815
  Serious: Yes (Death, Hospitalization)
  Sender: FDA-Public Use
  Company Number: BR-PFIZER INC-2016221229

PATIENT
  Age: 48 Year
  Sex: Male
  Weight: 67 kg

DRUGS (1)
  1. SUTENT [Suspect]
     Active Substance: SUNITINIB MALATE
     Indication: METASTATIC RENAL CELL CARCINOMA
     Dosage: 50 MG, ONCE DAILY, CYCLIC (3X1)
     Route: 048
     Dates: start: 20160408, end: 20160502

REACTIONS (6)
  - Arrhythmia [Fatal]
  - Constipation [Not Recovered/Not Resolved]
  - Respiratory failure [Fatal]
  - Infection [Fatal]
  - Abdominal distension [Not Recovered/Not Resolved]
  - Abdominal pain [Not Recovered/Not Resolved]

NARRATIVE: CASE EVENT DATE: 201604
